APPROVED DRUG PRODUCT: CLORAZEPATE DIPOTASSIUM
Active Ingredient: CLORAZEPATE DIPOTASSIUM
Strength: 3.75MG
Dosage Form/Route: CAPSULE;ORAL
Application: A072112 | Product #002
Applicant: RISING PHARMA HOLDINGS INC
Approved: Aug 26, 1988 | RLD: No | RS: No | Type: DISCN